FAERS Safety Report 23740789 (Version 1)
Quarter: 2024Q2

REPORT INFORMATION
  Report Type: Other
  Country: TW (occurrence: None)
  Receive Date: 20240415
  Receipt Date: 20240415
  Transmission Date: 20240716
  Serious: Yes (Other)
  Sender: FDA-Public Use
  Company Number: TW-ROCHE-3538771

PATIENT

DRUGS (2)
  1. ATEZOLIZUMAB [Suspect]
     Active Substance: ATEZOLIZUMAB
     Indication: Hepatocellular carcinoma
     Route: 042
  2. BEVACIZUMAB [Suspect]
     Active Substance: BEVACIZUMAB
     Indication: Hepatocellular carcinoma
     Dosage: 5-15 MG/KG
     Route: 042

REACTIONS (24)
  - Dermatitis [Unknown]
  - Radiation associated haemorrhage [Unknown]
  - Bleeding varicose vein [Unknown]
  - Intestinal perforation [Unknown]
  - Peptic ulcer haemorrhage [Unknown]
  - Aspartate aminotransferase increased [Unknown]
  - Decreased appetite [Unknown]
  - Nausea [Unknown]
  - Fatigue [Unknown]
  - Alanine aminotransferase increased [Unknown]
  - Hypertension [Unknown]
  - Pyrexia [Unknown]
  - Proteinuria [Unknown]
  - Colitis [Unknown]
  - Musculoskeletal pain [Unknown]
  - Headache [Unknown]
  - Infusion related reaction [Unknown]
  - Thrombocytopenia [Unknown]
  - Mouth ulceration [Unknown]
  - Blood bilirubin increased [Unknown]
  - Blood alkaline phosphatase increased [Unknown]
  - Hyperthyroidism [Unknown]
  - Anal ulcer haemorrhage [Unknown]
  - Insomnia [Unknown]
